FAERS Safety Report 9391346 (Version 1)
Quarter: 2013Q3

REPORT INFORMATION
  Report Type: Spontaneous
  Country: US (occurrence: US)
  Receive Date: 20130709
  Receipt Date: 20130709
  Transmission Date: 20140515
  Serious: Yes (Other)
  Sender: FDA-Public Use
  Company Number: US-PFIZER INC-2013198424

PATIENT
  Age: 60 Year
  Sex: Male
  Weight: 80.73 kg

DRUGS (15)
  1. VIAGRA [Suspect]
     Indication: ERECTILE DYSFUNCTION
     Dosage: 100 MG, AS NEEDED
     Route: 048
  2. METOPROLOL [Concomitant]
     Dosage: 50 MG, UNK
  3. DIOVAN [Concomitant]
     Dosage: 80 MG, UNK
  4. ALLOPURINOL [Concomitant]
     Dosage: 300 MG, UNK
  5. FOLIC ACID [Concomitant]
     Dosage: UNK
  6. ZOLPIDEM [Concomitant]
     Dosage: 5 MG, UNK
  7. FUROSEMIDE [Concomitant]
     Dosage: 50 MG, UNK
  8. AMLODIPINE [Concomitant]
     Dosage: 10 MG, UNK
  9. DIAZEPAM [Concomitant]
     Dosage: 5 MG, UNK
  10. PAROXETIN [Concomitant]
     Dosage: 20 MG, UNK
  11. LYRICA [Concomitant]
     Dosage: 100 MG, 2X/DAY
  12. LEVOTHROID [Concomitant]
     Dosage: 0.175 MG, 1X/DAY
  13. ACETAMINOPHEN W/HYDROCODONE BITARTRATE [Concomitant]
     Dosage: 325/2.5 MG, UNK
  14. ACETAMINOPHEN W/HYDROCODONE BITARTRATE [Concomitant]
     Dosage: 750/7.5 MG, UNK
  15. COLCRYS [Concomitant]
     Dosage: 0.6 MG, 3X/WEEK

REACTIONS (2)
  - Back pain [Unknown]
  - Drug ineffective [Unknown]
